FAERS Safety Report 4391877-7 (Version None)
Quarter: 2004Q3

REPORT INFORMATION
  Report Type: 
  Country: None (occurrence: None)
  Receive Date: 20040702
  Receipt Date: 20040514
  Transmission Date: 20050211
  Serious: No
  Sender: FDA-Public Use
  Company Number: 2004UW06057

PATIENT
  Age: 64 Year
  Sex: Male

DRUGS (8)
  1. CRESTOR [Suspect]
     Indication: BLOOD CHOLESTEROL INCREASED
     Dosage: 10 MG QD PO
     Route: 048
     Dates: start: 20040101
  2. LIPITOR [Concomitant]
  3. ASPIRIN [Concomitant]
  4. TEGRETOL [Concomitant]
  5. MULTI-VITAMIN [Concomitant]
  6. FOLIC ACID [Concomitant]
  7. FLAXSEED OIL CAPS [Concomitant]
  8. BEXTRA [Concomitant]

REACTIONS (1)
  - BLOOD PRESSURE INCREASED [None]
